FAERS Safety Report 4762038-4 (Version None)
Quarter: 2005Q3

REPORT INFORMATION
  Report Type: 
  Country: None (occurrence: None)
  Receive Date: 20050831
  Receipt Date: 20050706
  Transmission Date: 20060218
  Serious: No
  Sender: FDA-Public Use
  Company Number: PHEH2005US07480

PATIENT
  Age: 66 Year
  Sex: Female

DRUGS (1)
  1. ENABLEX(DARIFENACIN HYDROCHLORIDE) TABLET [Suspect]
     Indication: HYPERTONIC BLADDER
     Dates: start: 20050701

REACTIONS (2)
  - DRUG INEFFECTIVE [None]
  - DYSURIA [None]
